FAERS Safety Report 5911770-5 (Version None)
Quarter: 2008Q4

REPORT INFORMATION
  Report Type: 
  Country: None (occurrence: None)
  Receive Date: 20081003
  Receipt Date: 20080916
  Transmission Date: 20090506
  Serious: Yes (Life-Threatening)
  Sender: FDA-Public Use
  Company Number: 2008-00948FE

PATIENT
  Age: 92 Year
  Sex: Female

DRUGS (10)
  1. MINIRIN [Suspect]
     Indication: MICTURITION URGENCY
     Dosage: 10 MCG IN
     Route: 055
     Dates: start: 20080516, end: 20080525
  2. NORSET (NORSET) (MIRTAZAPINE) [Suspect]
     Indication: DEPRESSION
     Dosage: 1 TABLET(S) PO
     Route: 048
  3. INEXIUM (INEXIUM /01479302/) (ESOMEPRAZOLE MAGNESIUM) [Suspect]
     Dosage: 20 MG PO
     Route: 048
  4. RIVOTRIL (RIVOTRIL) (CLONAZEPAM) [Suspect]
     Indication: ANXIETY
     Dosage: 10 MG PO
     Route: 048
  5. RISPERDAL [Suspect]
     Indication: ANXIETY
     Dosage: 1 MG PO
     Route: 048
  6. TROSPIUM CHLORIDE [Concomitant]
  7. ACETYLSALICYLATE LYSINE [Concomitant]
  8. MACROGOL [Concomitant]
  9. SODIUM CHLORIDE INJ [Concomitant]
  10. ACETAMINOPHEN W/ CODEINE [Concomitant]

REACTIONS (4)
  - DRUG INTERACTION [None]
  - FALL [None]
  - HYPONATRAEMIA [None]
  - OFF LABEL USE [None]
